FAERS Safety Report 9057030 (Version 1)
Quarter: 2013Q1

REPORT INFORMATION
  Report Type: Report from Study
  Country: US (occurrence: US)
  Receive Date: 20130131
  Receipt Date: 20130131
  Transmission Date: 20140127
  Serious: No
  Sender: FDA-Public Use
  Company Number: US-ABBOTT-12P-163-0990507-00

PATIENT
  Age: 50 None
  Sex: Female
  Weight: 77.18 kg

DRUGS (16)
  1. HUMIRA [Suspect]
     Indication: PSORIASIS
  2. ALPRAZOLAM [Concomitant]
     Indication: ANXIETY
  3. FLEXERIL [Concomitant]
     Indication: MYALGIA
  4. IBUPROFEN [Concomitant]
     Indication: PAIN
  5. LASIX [Concomitant]
     Indication: FLUID RETENTION
  6. MUCINEX [Concomitant]
     Indication: PRODUCT USED FOR UNKNOWN INDICATION
  7. OXYCODONE [Concomitant]
     Indication: PAIN
  8. OXYCONTIN [Concomitant]
     Indication: PAIN
  9. POTASSIUM [Concomitant]
     Indication: HYPOKALAEMIA
  10. PRILOSEC [Concomitant]
     Indication: GASTROOESOPHAGEAL REFLUX DISEASE
  11. PRISTIQ [Concomitant]
     Indication: DEPRESSION
  12. SUDAFED [Concomitant]
     Indication: HYPERSENSITIVITY
  13. SEROQUEL [Concomitant]
     Indication: BIPOLAR DISORDER
  14. SEROQUEL [Concomitant]
     Indication: DEPRESSION
  15. TYLENOL [Concomitant]
     Indication: PAIN
  16. MUPRICON [Concomitant]
     Indication: PRODUCT USED FOR UNKNOWN INDICATION

REACTIONS (6)
  - Sinusitis [Recovered/Resolved]
  - Syncope [Recovered/Resolved]
  - Dehydration [Recovered/Resolved]
  - Nausea [Not Recovered/Not Resolved]
  - Pain [Not Recovered/Not Resolved]
  - Malaise [Not Recovered/Not Resolved]
